FAERS Safety Report 7549298-1 (Version None)
Quarter: 2011Q2

REPORT INFORMATION
  Report Type: 
  Country: None (occurrence: None)
  Receive Date: 20110615
  Receipt Date: 20030328
  Transmission Date: 20111010
  Serious: Yes (Other)
  Sender: FDA-Public Use
  Company Number: PHHO2003NL04417

PATIENT
  Age: 58 Year
  Sex: Male

DRUGS (1)
  1. LESCOL [Suspect]
     Indication: HYPERCHOLESTEROLAEMIA
     Dosage: 80 MG/DAY
     Route: 048

REACTIONS (2)
  - LUNG CANCER METASTATIC [None]
  - FEELING ABNORMAL [None]
